FAERS Safety Report 18077867 (Version 1)
Quarter: 2020Q3

REPORT INFORMATION
  Report Type: Spontaneous
  Country: US (occurrence: US)
  Receive Date: 20200727
  Receipt Date: 20200727
  Transmission Date: 20201103
  Serious: Yes (Hospitalization)
  Sender: FDA-Public Use
  Company Number: None

PATIENT
  Age: 61 Year
  Sex: Female

DRUGS (3)
  1. HUMIRA [Suspect]
     Active Substance: ADALIMUMAB
     Indication: PRODUCT USED FOR UNKNOWN INDICATION
     Dosage: ?          OTHER DOSE:1 PEN;OTHER FREQUENCY:Q2WK;?
     Route: 058
     Dates: start: 20200330
  2. METHOTREXATE. [Concomitant]
     Active Substance: METHOTREXATE
  3. ESTRA/NORETH [Concomitant]

REACTIONS (2)
  - Therapy interrupted [None]
  - Surgery [None]

NARRATIVE: CASE EVENT DATE: 20200724
